FAERS Safety Report 24718312 (Version 1)
Quarter: 2024Q4

REPORT INFORMATION
  Report Type: Spontaneous
  Country: US (occurrence: None)
  Receive Date: 20241210
  Receipt Date: 20241210
  Transmission Date: 20250114
  Serious: No
  Sender: Public
  Company Number: None

PATIENT
  Age: 66 Year
  Sex: Male

DRUGS (1)
  1. PIOGLITAZONE [Suspect]
     Active Substance: PIOGLITAZONE
     Dosage: FREQUENCY : DAILY;?
     Route: 048

REACTIONS (2)
  - Abdominal wall oedema [None]
  - Cardiac failure [None]

NARRATIVE: CASE EVENT DATE: 20220329
